FAERS Safety Report 16435246 (Version 1)
Quarter: 2019Q2

REPORT INFORMATION
  Report Type: Spontaneous
  Country: FR (occurrence: FR)
  Receive Date: 20190614
  Receipt Date: 20190614
  Transmission Date: 20190711
  Serious: Yes (Other)
  Sender: FDA-Public Use
  Company Number: FR-009507513-1906FRA002241

PATIENT
  Age: 54 Year
  Sex: Male
  Weight: 71.2 kg

DRUGS (5)
  1. ISENTRESS [Suspect]
     Active Substance: RALTEGRAVIR POTASSIUM
     Indication: HIV TEST POSITIVE
     Dosage: 2 DOSAGE FORM, QD
     Route: 048
     Dates: start: 20190418, end: 20190501
  2. TENOFOVIR DISOPROXIL FUMARATE. [Interacting]
     Active Substance: TENOFOVIR DISOPROXIL FUMARATE
     Indication: HIV TEST POSITIVE
     Dosage: 1 DOSAGE FORM, QD
     Route: 048
     Dates: start: 20190419, end: 20190502
  3. PARACETAMOL BRAUN [Suspect]
     Active Substance: ACETAMINOPHEN
     Indication: PYREXIA
     Dosage: UNK
     Route: 041
     Dates: start: 20190424, end: 20190430
  4. VORICONAZOLE. [Interacting]
     Active Substance: VORICONAZOLE
     Indication: BRONCHOPULMONARY ASPERGILLOSIS
     Dosage: 800 MILLIGRAM, QD
     Route: 041
     Dates: start: 20190415, end: 20190426
  5. FUZEON [Concomitant]
     Active Substance: ENFUVIRTIDE
     Dosage: UNK

REACTIONS (5)
  - Drug interaction [Recovered/Resolved]
  - Gamma-glutamyltransferase increased [Recovered/Resolved with Sequelae]
  - Inhibitory drug interaction [Recovered/Resolved]
  - Hypertransaminasaemia [Recovered/Resolved]
  - Blood alkaline phosphatase increased [Recovering/Resolving]

NARRATIVE: CASE EVENT DATE: 20190426
